FAERS Safety Report 9251696 (Version 2)
Quarter: 2013Q2

REPORT INFORMATION
  Report Type: Spontaneous
  Country: JP (occurrence: JP)
  Receive Date: 20130424
  Receipt Date: 20130604
  Transmission Date: 20140414
  Serious: Yes (Hospitalization)
  Sender: FDA-Public Use
  Company Number: JP-JNJFOC-20130403576

PATIENT
  Age: 74 Year
  Sex: Male

DRUGS (20)
  1. TRAMACET [Suspect]
     Indication: PAIN
     Dosage: AS NEEDED
     Route: 048
     Dates: start: 20121130, end: 20121226
  2. GONAX [Suspect]
     Indication: PROSTATE CANCER
     Dosage: 1 PER 1 DAY
     Route: 058
     Dates: start: 20121206, end: 20121206
  3. TAXOTERE [Suspect]
     Indication: PROSTATE CANCER
     Dosage: 1 PER 1 DAY
     Route: 042
     Dates: start: 20121206, end: 20121206
  4. TAXOTERE [Suspect]
     Indication: PROSTATE CANCER
     Dosage: 1 PER 1 DAY
     Route: 042
     Dates: start: 20130110, end: 20130110
  5. FLOMOX [Suspect]
     Indication: UPPER RESPIRATORY TRACT INFECTION
     Dosage: 1 PER 1 DAY
     Route: 048
     Dates: start: 20121218, end: 20121226
  6. FAMOTIDINE [Concomitant]
     Indication: GASTRITIS
     Dosage: 1 PER 1 DAY
     Route: 048
  7. BAYASPIRIN [Concomitant]
     Dosage: 1 PER 1 DAY
     Route: 048
  8. DIOVAN [Concomitant]
     Indication: HYPERTENSION
     Dosage: 1 PER 1 DAY
     Route: 048
  9. URIEF [Concomitant]
     Dosage: 1 PER 1 DAY
     Route: 048
  10. AMLODIN [Concomitant]
     Indication: HYPERTENSION
     Dosage: 1 PER 1 DAY
     Route: 048
     Dates: start: 20121226
  11. LIPITOR [Concomitant]
     Indication: HYPERLIPIDAEMIA
     Dosage: 1 PER 1 DAY
     Route: 048
     Dates: start: 20121226
  12. PREDNISOLONE [Concomitant]
     Indication: PROSTATE CANCER
     Dosage: 1 PER 1 DAY
     Route: 048
     Dates: start: 20091102
  13. LYRICA [Concomitant]
     Indication: OSTEONECROSIS OF JAW
     Dosage: 1 PER 1 DAY
     Route: 048
  14. CADUET [Concomitant]
     Indication: HYPERTENSION
     Route: 048
     Dates: start: 20110427, end: 20121226
  15. CADUET [Concomitant]
     Indication: HYPERLIPIDAEMIA
     Route: 048
     Dates: start: 20110427, end: 20121226
  16. NOVAMIN [Concomitant]
     Indication: OSTEONECROSIS OF JAW
     Dosage: 1 PER 1 DAY
     Route: 048
     Dates: start: 20121207
  17. GLACTIV [Concomitant]
     Indication: DIABETES MELLITUS
     Dosage: 1 PER 1 DAY
     Route: 048
     Dates: start: 20110427, end: 20121226
  18. SG (APRONAL/CAFFEINE/PARACETAMOL/PROPYPHENAZONE) [Concomitant]
     Indication: OSTEONECROSIS OF JAW
     Dosage: 1 PER 1 DAY
     Route: 048
     Dates: start: 201210, end: 20121226
  19. SG (APRONAL/CAFFEINE/PARACETAMOL/PROPYPHENAZONE) [Concomitant]
     Indication: UPPER RESPIRATORY TRACT INFLAMMATION
     Dosage: 1 PER 1 DAY
     Route: 048
     Dates: start: 201210, end: 20121226
  20. MEDICON [Concomitant]
     Indication: UPPER RESPIRATORY TRACT INFLAMMATION
     Dosage: 1 PER 1 DAY
     Route: 048
     Dates: start: 20121218, end: 20121226

REACTIONS (3)
  - Interstitial lung disease [Recovering/Resolving]
  - Upper respiratory tract inflammation [Not Recovered/Not Resolved]
  - Drug prescribing error [Unknown]
